FAERS Safety Report 7264745-0 (Version None)
Quarter: 2011Q1

REPORT INFORMATION
  Report Type: 
  Country: None (occurrence: None)
  Receive Date: 20110131
  Receipt Date: 20110119
  Transmission Date: 20110831
  Serious: Yes (Other)
  Sender: FDA-Public Use
  Company Number: CA-SANOFI-AVENTIS-2010SA060550

PATIENT
  Age: 61 Year
  Sex: Female

DRUGS (7)
  1. MULTAQ [Suspect]
     Indication: ATRIAL FIBRILLATION
     Route: 048
     Dates: start: 20101003
  2. TIAZAC [Suspect]
     Indication: ATRIAL FIBRILLATION
     Route: 048
     Dates: start: 20101001
  3. ASPIRIN [Concomitant]
  4. MESALAMINE [Concomitant]
     Indication: COLITIS
     Route: 048
     Dates: start: 20091001
  5. MULTIVITAMIN [Concomitant]
  6. CALCIUM [Concomitant]
  7. PSYLLIUM [Concomitant]

REACTIONS (4)
  - MALAISE [None]
  - ABDOMINAL PAIN UPPER [None]
  - NAUSEA [None]
  - ATRIAL FIBRILLATION [None]
